FAERS Safety Report 18948096 (Version 1)
Quarter: 2021Q1

REPORT INFORMATION
  Report Type: Spontaneous
  Country: US (occurrence: US)
  Receive Date: 20210227
  Receipt Date: 20210227
  Transmission Date: 20210420
  Serious: No
  Sender: FDA-Public Use
  Company Number: US-ORGANON-2101USA008626

PATIENT
  Age: 17 Year
  Sex: Female
  Weight: 58.5 kg

DRUGS (3)
  1. PROZAC [Concomitant]
     Active Substance: FLUOXETINE HYDROCHLORIDE
     Indication: DEPRESSION
     Dosage: UNK
     Route: 048
  2. ADDERALL [Concomitant]
     Active Substance: AMPHETAMINE ASPARTATE\AMPHETAMINE SULFATE\DEXTROAMPHETAMINE SACCHARATE\DEXTROAMPHETAMINE SULFATE
     Indication: ATTENTION DEFICIT HYPERACTIVITY DISORDER
     Dosage: UNK
     Route: 048
  3. NEXPLANON [Suspect]
     Active Substance: ETONOGESTREL
     Indication: CONTRACEPTION
     Dosage: ONE TIME INJECTION
     Route: 059
     Dates: start: 20201103, end: 20210122

REACTIONS (2)
  - Hypersensitivity [Not Recovered/Not Resolved]
  - Metrorrhagia [Not Recovered/Not Resolved]

NARRATIVE: CASE EVENT DATE: 20210115
